FAERS Safety Report 5446363-X (Version None)
Quarter: 2007Q3

REPORT INFORMATION
  Report Type: 
  Country: None (occurrence: None)
  Receive Date: 20070907
  Receipt Date: 20070827
  Transmission Date: 20080115
  Serious: Yes (Other)
  Sender: FDA-Public Use
  Company Number: B0484604A

PATIENT
  Sex: Male

DRUGS (4)
  1. VENTOLIN [Suspect]
     Route: 055
  2. OMEPRAZOLE [Concomitant]
     Route: 065
  3. VITAMINS [Concomitant]
     Route: 065
  4. NITROGLYCERIN [Concomitant]

REACTIONS (2)
  - ANGINA PECTORIS [None]
  - CHEST DISCOMFORT [None]
